FAERS Safety Report 15570529 (Version 2)
Quarter: 2018Q4

REPORT INFORMATION
  Report Type: Spontaneous
  Country: PH (occurrence: PH)
  Receive Date: 20181031
  Receipt Date: 20181109
  Transmission Date: 20190205
  Serious: Yes (Life-Threatening, Other)
  Sender: FDA-Public Use
  Company Number: PH-PFIZER INC-2018441740

PATIENT
  Age: 36 Year
  Sex: Female

DRUGS (9)
  1. LINEZOLID. [Suspect]
     Active Substance: LINEZOLID
     Indication: CARDIAC PSEUDOANEURYSM
     Dosage: UNK
  2. TRAMADOL. [Suspect]
     Active Substance: TRAMADOL
     Indication: CARDIAC PSEUDOANEURYSM
     Dosage: UNK
  3. PIPERACILLIN/SULBACTAM [Concomitant]
     Indication: PNEUMONIA
     Dosage: UNK
  4. ISONIAZID. [Suspect]
     Active Substance: ISONIAZID
     Indication: TUBERCULOSIS
     Dosage: UNK
  5. LINEZOLID. [Suspect]
     Active Substance: LINEZOLID
     Indication: PNEUMONIA
  6. PIPERACILLIN/SULBACTAM [Concomitant]
     Indication: CARDIAC PSEUDOANEURYSM
  7. TRAMADOL. [Suspect]
     Active Substance: TRAMADOL
     Indication: PNEUMONIA
  8. VANCOMYCIN [Concomitant]
     Active Substance: VANCOMYCIN
     Indication: CARDIAC PSEUDOANEURYSM
  9. VANCOMYCIN [Concomitant]
     Active Substance: VANCOMYCIN
     Indication: PNEUMONIA
     Dosage: UNK

REACTIONS (3)
  - Serotonin syndrome [Recovering/Resolving]
  - Rhabdomyolysis [Recovering/Resolving]
  - Chest pain [Recovering/Resolving]
